FAERS Safety Report 8933840 (Version 1)
Quarter: 2012Q4

REPORT INFORMATION
  Report Type: 
  Country: JP (occurrence: JP)
  Receive Date: 20121129
  Receipt Date: 20121129
  Transmission Date: 20130627
  Serious: Yes (Hospitalization, Other)
  Sender: FDA-Public Use
  Company Number: JP-VERTEX PHARMACEUTICAL INC.-AE-2012-005979

PATIENT
  Age: 61 Year
  Sex: Male

DRUGS (20)
  1. TELAVIC [Suspect]
     Indication: CHRONIC HEPATITIS C
     Dosage: 2250 mg, qd
     Route: 048
     Dates: start: 20120111, end: 20120329
  2. TELAVIC [Suspect]
     Dosage: 750 mg, qd
     Route: 048
     Dates: start: 20120330
  3. TELAVIC [Suspect]
     Dosage: 1000 mg, qd
     Route: 048
     Dates: start: 20120330, end: 20120406
  4. REBETOL [Suspect]
     Indication: CHRONIC HEPATITIS C
     Dosage: 800 mg, qd
     Route: 048
     Dates: start: 20120111, end: 20120223
  5. REBETOL [Suspect]
     Dosage: 600 mg, qd
     Route: 048
     Dates: start: 20120224, end: 20120301
  6. REBETOL [Suspect]
     Dosage: 400 mg, qd
     Route: 048
     Dates: start: 20120302, end: 20120517
  7. REBETOL [Suspect]
     Dosage: 600 mg, qd
     Route: 048
     Dates: start: 20120518, end: 20120531
  8. PEGINTRON                          /01543001/ [Suspect]
     Indication: CHRONIC HEPATITIS C
     Dosage: 1.56 ?g/kg, week
     Route: 058
     Dates: start: 20120111, end: 20120224
  9. PEGINTRON                          /01543001/ [Suspect]
     Dosage: 1.25 ?g/kg, week
     Route: 058
     Dates: start: 20120203
  10. PEGINTRON                          /01543001/ [Suspect]
     Dosage: 1.3 ?g/kg, week
     Route: 058
     Dates: start: 20120111
  11. PEGINTRON                          /01543001/ [Suspect]
     Dosage: once a week
     Route: 058
     Dates: end: 20120125
  12. PEGINTRON                          /01543001/ [Suspect]
     Dosage: 1.06 ?g/kg, week
     Route: 058
     Dates: start: 20120126, end: 20120531
  13. URSO                               /00465701/ [Concomitant]
     Dosage: 6 DF, UNK
     Route: 048
  14. LORFENAMIN [Concomitant]
     Dosage: UNK, prn
     Route: 048
     Dates: start: 20120111, end: 20120124
  15. MUCOSTA [Concomitant]
     Dosage: 300 mg, qd
     Route: 048
     Dates: start: 20120118
  16. LYRICA [Concomitant]
     Dosage: 75 mg, qd
     Route: 048
     Dates: start: 20120121
  17. EPADEL                             /01682401/ [Concomitant]
     Dosage: 2 DF, qd
     Route: 048
     Dates: start: 20120217
  18. LENDORMIN [Concomitant]
     Dosage: 0.25 mg, qd
     Route: 048
     Dates: start: 20120217
  19. HANGESHASHINTO EXTRACT GRANULES [Concomitant]
     Dosage: 7.5 g, qd
     Route: 048
     Dates: start: 20120217
  20. CARTIN                             /00878601/ [Concomitant]
     Dosage: 1800 mg, qd
     Route: 048
     Dates: start: 20120518

REACTIONS (3)
  - Interstitial lung disease [Recovered/Resolved]
  - Interstitial lung disease [Recovered/Resolved]
  - Haemoglobin decreased [Not Recovered/Not Resolved]
